FAERS Safety Report 17915839 (Version 1)
Quarter: 2020Q2

REPORT INFORMATION
  Report Type: Spontaneous
  Country: US (occurrence: US)
  Receive Date: 20200618
  Receipt Date: 20200618
  Transmission Date: 20200714
  Serious: Yes (Life-Threatening, Hospitalization, Disabling)
  Sender: FDA-Public Use
  Company Number: None

PATIENT
  Age: 32 Year
  Sex: Male
  Weight: 76.5 kg

DRUGS (5)
  1. MULTIVITAMIN [Concomitant]
     Active Substance: VITAMINS
  2. OXCARBAZEPINE. [Concomitant]
     Active Substance: OXCARBAZEPINE
  3. VITAMIN C [Concomitant]
     Active Substance: ASCORBIC ACID
  4. OXCARBAZEPINE 600MG TABLET [Suspect]
     Active Substance: OXCARBAZEPINE
     Indication: EPILEPSY
     Dosage: ?          QUANTITY:2 TABLET(S);?
     Route: 048
  5. LEVOTHYROXINE. [Concomitant]
     Active Substance: LEVOTHYROXINE

REACTIONS (7)
  - Poor quality product administered [None]
  - Generalised tonic-clonic seizure [None]
  - Coma [None]
  - Anticonvulsant drug level [None]
  - Adverse drug reaction [None]
  - Drug screen negative [None]
  - Aura [None]

NARRATIVE: CASE EVENT DATE: 20200507
